FAERS Safety Report 24890281 (Version 1)
Quarter: 2025Q1

REPORT INFORMATION
  Report Type: Spontaneous
  Country: US (occurrence: None)
  Receive Date: 20250125
  Receipt Date: 20250125
  Transmission Date: 20250409
  Serious: No
  Sender: FDA-CTU
  Company Number: None

PATIENT
  Age: 50 Year
  Sex: Female
  Weight: 144 kg

DRUGS (16)
  1. ZEPBOUND [Suspect]
     Active Substance: TIRZEPATIDE
     Indication: Weight decreased
     Route: 058
  2. VYVANSE [Concomitant]
     Active Substance: LISDEXAMFETAMINE DIMESYLATE
  3. LEVOTHYROXINE [Concomitant]
     Active Substance: LEVOTHYROXINE
  4. HYDROCHLOROTHIAZIDE [Concomitant]
     Active Substance: HYDROCHLOROTHIAZIDE
  5. ELIQUIS [Concomitant]
     Active Substance: APIXABAN
  6. METFORMIN [Concomitant]
     Active Substance: METFORMIN HYDROCHLORIDE
  7. SEROQUEL [Concomitant]
     Active Substance: QUETIAPINE FUMARATE
  8. GALLIFREY [Concomitant]
     Active Substance: NORETHINDRONE ACETATE
  9. ESTROGENS [Concomitant]
     Active Substance: ESTROGENS
  10. Magnesium gylclinate [Concomitant]
  11. IRON BISGLYCINATE [Concomitant]
  12. APPLE CIDER VINEGAR [Concomitant]
     Active Substance: APPLE CIDER VINEGAR
  13. Ceylon cinnamon [Concomitant]
  14. PSYLLIUM FIBER [Suspect]
     Active Substance: PSYLLIUM HUSK
  15. XYZAL [Concomitant]
     Active Substance: LEVOCETIRIZINE DIHYDROCHLORIDE
  16. VITAMIN D [Concomitant]
     Active Substance: VITAMIN D NOS

REACTIONS (3)
  - Neck pain [None]
  - Hyperaesthesia [None]
  - Back pain [None]

NARRATIVE: CASE EVENT DATE: 20250125
